FAERS Safety Report 25816440 (Version 1)
Quarter: 2025Q3

REPORT INFORMATION
  Report Type: Spontaneous
  Country: US (occurrence: US)
  Receive Date: 20250918
  Receipt Date: 20250918
  Transmission Date: 20251021
  Serious: No
  Sender: PADAGIS
  Company Number: US-PADAGIS-2025PAD01123

PATIENT

DRUGS (2)
  1. MORPHINE SULFATE [Suspect]
     Active Substance: MORPHINE SULFATE
     Indication: Product used for unknown indication
     Route: 065
  2. ESTRADIOL VAGINAL [Suspect]
     Active Substance: ESTRADIOL
     Indication: Vulvovaginal dryness
     Route: 067

REACTIONS (3)
  - Drug hypersensitivity [Unknown]
  - Product prescribing issue [Unknown]
  - Product quality issue [Unknown]
